FAERS Safety Report 22164897 (Version 1)
Quarter: 2023Q2

REPORT INFORMATION
  Report Type: Spontaneous
  Country: PR (occurrence: PR)
  Receive Date: 20230403
  Receipt Date: 20230403
  Transmission Date: 20230722
  Serious: No
  Sender: FDA-Public Use
  Company Number: PR-BIOGEN-2023BI01195614

PATIENT
  Age: 5 Year
  Sex: Female

DRUGS (5)
  1. SPINRAZA [Suspect]
     Active Substance: NUSINERSEN
     Indication: Spinal muscular atrophy
     Dosage: LOADING DOSE
     Route: 050
  2. SPINRAZA [Suspect]
     Active Substance: NUSINERSEN
     Dosage: LOADING DOSE
     Route: 050
  3. SPINRAZA [Suspect]
     Active Substance: NUSINERSEN
     Dosage: LOADING DOSE
     Route: 050
  4. SPINRAZA [Suspect]
     Active Substance: NUSINERSEN
     Dosage: LOADING DOSE
     Route: 050
  5. SPINRAZA [Suspect]
     Active Substance: NUSINERSEN
     Dosage: MAINTENANCE DOSE
     Route: 050

REACTIONS (4)
  - Protein urine present [Unknown]
  - Blood glucose decreased [Unknown]
  - Blood creatinine decreased [Unknown]
  - Carbon dioxide decreased [Unknown]

NARRATIVE: CASE EVENT DATE: 20230322
